FAERS Safety Report 9490916 (Version 1)
Quarter: 2013Q3

REPORT INFORMATION
  Report Type: Spontaneous
  Country: US (occurrence: None)
  Receive Date: 20130828
  Receipt Date: 20130828
  Transmission Date: 20140515
  Serious: Yes (Disabling)
  Sender: FDA-Public Use
  Company Number: None

PATIENT
  Age: 42 Year
  Sex: Female
  Weight: 79.83 kg

DRUGS (1)
  1. ZPACK [Suspect]
     Indication: SINUSITIS
     Dosage: 5 PILL PACK  ONCE DAILY  TAKEN BY MOUTH
     Route: 048
     Dates: start: 20100113

REACTIONS (9)
  - Feeling abnormal [None]
  - Discomfort [None]
  - Syncope [None]
  - Hypertension [None]
  - Heart rate increased [None]
  - Dysstasia [None]
  - Disturbance in attention [None]
  - Abasia [None]
  - Atrial fibrillation [None]
